FAERS Safety Report 4474020-5 (Version None)
Quarter: 2004Q4

REPORT INFORMATION
  Report Type: 
  Country: None (occurrence: None)
  Receive Date: 20041008
  Receipt Date: 20040921
  Transmission Date: 20050328
  Serious: Yes (Hospitalization, Other)
  Sender: FDA-Public Use
  Company Number: USA040567612

PATIENT
  Age: 69 Year
  Sex: Female
  Weight: 85 kg

DRUGS (9)
  1. FORTEO [Suspect]
     Indication: OSTEOPOROSIS
     Dosage: 20 UG DAY
     Dates: start: 20031101
  2. SYNTHROID [Concomitant]
  3. LEVOTHYROXINE SODIUM [Concomitant]
  4. NEXIUM [Concomitant]
  5. IRON [Concomitant]
  6. TUMS (CALCIUM CARBONATE) [Concomitant]
  7. LASIX [Concomitant]
  8. AMBIEN [Concomitant]
  9. AMITRIPTYLINE HCL [Concomitant]

REACTIONS (11)
  - ARTHRALGIA [None]
  - BONE PAIN [None]
  - DIFFICULTY IN WALKING [None]
  - GRIP STRENGTH DECREASED [None]
  - MUSCLE CRAMP [None]
  - MYALGIA [None]
  - NECK PAIN [None]
  - PAIN [None]
  - PAIN IN EXTREMITY [None]
  - PHARMACEUTICAL PRODUCT COMPLAINT [None]
  - WALKING AID USER [None]
